FAERS Safety Report 13536907 (Version 4)
Quarter: 2017Q3

REPORT INFORMATION
  Report Type: Spontaneous
  Country: KR (occurrence: KR)
  Receive Date: 20170511
  Receipt Date: 20170802
  Transmission Date: 20171127
  Serious: Yes (Hospitalization, Other)
  Sender: FDA-Public Use
  Company Number: KR-009507513-1705KOR005088

PATIENT
  Age: 81 Year
  Sex: Female
  Weight: 41 kg

DRUGS (25)
  1. CISPLATIN. [Concomitant]
     Active Substance: CISPLATIN
     Indication: SQUAMOUS CELL CARCINOMA OF THE TONGUE
     Dosage: 50 MG, ONCE (STRENGTH: 50 MG/ 100 ML)
     Route: 042
     Dates: start: 20160901, end: 20160901
  2. FLUOROURACIL. [Concomitant]
     Active Substance: FLUOROURACIL
     Dosage: 1000 MG, ONCE (STRENGTH: 1000 MG/20 ML)
     Route: 042
     Dates: start: 20161006, end: 20161006
  3. SURFOLASE [Concomitant]
     Indication: PROPHYLAXIS
     Dosage: 100 MG, BID
     Route: 048
     Dates: start: 20160817
  4. CHOLINE ALFOSCERATE [Concomitant]
     Active Substance: CHOLINE ALFOSCERATE
     Indication: CARDIOVASCULAR EVENT PROPHYLAXIS
     Dosage: 400 MG, BID
     Route: 048
  5. LASIX [Concomitant]
     Active Substance: FUROSEMIDE
     Indication: ASCITES
     Dosage: 20 MG, ONCE (STRENGTH: 20 MG/ ML)
     Route: 042
     Dates: start: 20161006, end: 20161006
  6. MIRTAX [Concomitant]
     Indication: PROPHYLAXIS
     Dosage: 15 MG, QD
     Route: 048
     Dates: start: 20160908
  7. ALOXI [Concomitant]
     Active Substance: PALONOSETRON HYDROCHLORIDE
     Dosage: 0.25 MG, QD
     Route: 042
     Dates: start: 20161006, end: 20161006
  8. FLUOROURACIL. [Concomitant]
     Active Substance: FLUOROURACIL
     Indication: SQUAMOUS CELL CARCINOMA OF THE TONGUE
     Dosage: 1000 MG, ONCE (STRENGTH: 1000 MG/20 ML)
     Route: 042
     Dates: start: 20160901, end: 20160901
  9. STILLEN (CHINESE MUGWORT) [Concomitant]
     Indication: PROPHYLAXIS
     Dosage: 60 MG, BID
     Route: 048
  10. EMEND (FOSAPREPITANT DIMEGLUMINE) [Suspect]
     Active Substance: FOSAPREPITANT DIMEGLUMINE
     Dosage: 150 MG, ONCE
     Route: 042
     Dates: start: 20161006, end: 20161006
  11. CISPLATIN. [Concomitant]
     Active Substance: CISPLATIN
     Indication: SQUAMOUS CELL CARCINOMA OF THE TONGUE
     Dosage: 26 MG, ONCE (STRENGTH: 10MG/20ML)
     Route: 042
     Dates: start: 20160901, end: 20160901
  12. FLUOROURACIL. [Concomitant]
     Active Substance: FLUOROURACIL
     Indication: SQUAMOUS CELL CARCINOMA OF THE TONGUE
     Dosage: 260 MG, ONCE  (STRENGTH: 500 MG/10 ML)
     Route: 042
     Dates: start: 20160901, end: 20160901
  13. TARGIN [Concomitant]
     Active Substance: NALOXONE HYDROCHLORIDE\OXYCODONE HYDROCHLORIDE
     Indication: CANCER PAIN
     Dosage: 1 TABLET, BID
     Route: 048
     Dates: start: 20160905
  14. CISPLATIN. [Concomitant]
     Active Substance: CISPLATIN
     Dosage: 26 MG, ONCE (STRENGTH: 10MG/20ML)
     Route: 042
     Dates: start: 20161006, end: 20161006
  15. CISPLATIN. [Concomitant]
     Active Substance: CISPLATIN
     Dosage: 50 MG, ONCE (STRENGTH: 50 MG/ 100 ML)
     Route: 042
     Dates: start: 20161006, end: 20161006
  16. MANNITOL. [Concomitant]
     Active Substance: MANNITOL
     Dosage: 100 ML, ONCE
     Route: 042
     Dates: start: 20161006, end: 20161006
  17. LASIX [Concomitant]
     Active Substance: FUROSEMIDE
     Indication: PREMEDICATION
     Dosage: 20 MG, ONCE (STRENGTH: 20 MG/ ML)
     Route: 042
     Dates: start: 20160901, end: 20160901
  18. MANNITOL. [Concomitant]
     Active Substance: MANNITOL
     Indication: PREMEDICATION
     Dosage: 100 ML, ONCE
     Route: 042
     Dates: start: 20160901, end: 20160901
  19. QUETIAPINE FUMARATE. [Concomitant]
     Active Substance: QUETIAPINE FUMARATE
     Indication: PROPHYLAXIS
     Dosage: 12.5 MG QD
     Route: 048
     Dates: start: 20160902
  20. FLUOROURACIL. [Concomitant]
     Active Substance: FLUOROURACIL
     Dosage: 260 MG, ONCE  (STRENGTH: 500 MG/10 ML)
     Route: 042
     Dates: start: 20161006, end: 20161006
  21. LASIX [Concomitant]
     Active Substance: FUROSEMIDE
     Dosage: 20 MG, ONCE (STRENGTH: 20 MG/ ML)
     Route: 042
     Dates: start: 20161019, end: 20161020
  22. ALOXI [Concomitant]
     Active Substance: PALONOSETRON HYDROCHLORIDE
     Indication: PROPHYLAXIS
     Dosage: 0.25 MG, QD
     Route: 042
     Dates: start: 20160901, end: 20160901
  23. EMEND (FOSAPREPITANT DIMEGLUMINE) [Suspect]
     Active Substance: FOSAPREPITANT DIMEGLUMINE
     Indication: PROPHYLAXIS OF NAUSEA AND VOMITING
     Dosage: 150 MG, ONCE
     Route: 042
     Dates: start: 20160901, end: 20160901
  24. ASPIRIN. [Concomitant]
     Active Substance: ASPIRIN
     Indication: CARDIOVASCULAR EVENT PROPHYLAXIS
     Dosage: 100 MG, QD
     Route: 048
  25. DUPHALAC [Concomitant]
     Active Substance: LACTULOSE
     Indication: CONSTIPATION PROPHYLAXIS
     Dosage: 20 ML, TID
     Route: 048
     Dates: start: 20160830, end: 20161011

REACTIONS (5)
  - Sepsis [Recovered/Resolved]
  - Urinary tract infection [Recovered/Resolved]
  - Neutropenia [Recovered/Resolved]
  - Diarrhoea [Recovered/Resolved]
  - Anaemia [Recovered/Resolved]

NARRATIVE: CASE EVENT DATE: 20161010
